FAERS Safety Report 5832695-X (Version None)
Quarter: 2008Q3

REPORT INFORMATION
  Report Type: 
  Country: None (occurrence: None)
  Receive Date: 20080804
  Receipt Date: 20080804
  Transmission Date: 20090109
  Serious: Yes (Hospitalization)
  Sender: FDA-Public Use
  Company Number: PHEH2000US10734

PATIENT
  Sex: Male
  Weight: 86.3 kg

DRUGS (2)
  1. RAD 666 RAD+ [Suspect]
     Indication: HEART TRANSPLANT
     Dosage: 0.75 MG, BID
     Route: 048
     Dates: start: 19990419, end: 20001116
  2. NEORAL [Suspect]
     Indication: HEART TRANSPLANT
     Dosage: UNK, BID
     Route: 048

REACTIONS (7)
  - DRUG INTERACTION [None]
  - DYSPNOEA [None]
  - FLUID OVERLOAD [None]
  - NEPHROPATHY TOXIC [None]
  - OEDEMA PERIPHERAL [None]
  - OLIGURIA [None]
  - RENAL FAILURE [None]
